FAERS Safety Report 7168342-7 (Version None)
Quarter: 2010Q4

REPORT INFORMATION
  Report Type: 
  Country: None (occurrence: None)
  Receive Date: 20101216
  Receipt Date: 20101209
  Transmission Date: 20110411
  Serious: Yes (Hospitalization, Disabling, Other)
  Sender: FDA-Public Use
  Company Number: US-MERCK-1004USA00206

PATIENT
  Age: 57 Year
  Sex: Male
  Weight: 91 kg

DRUGS (3)
  1. FOSAMAX [Suspect]
     Indication: BONE DENSITY DECREASED
     Route: 048
     Dates: start: 20031001, end: 20061230
  2. FOSAMAX PLUS D [Suspect]
     Indication: BONE DENSITY DECREASED
     Route: 048
     Dates: start: 20070105, end: 20080423
  3. VASOTEC [Concomitant]
     Indication: HYPERTENSION
     Route: 048

REACTIONS (13)
  - ARTHRALGIA [None]
  - ARTHROPATHY [None]
  - BLOOD CHOLESTEROL INCREASED [None]
  - BLOOD PARATHYROID HORMONE INCREASED [None]
  - FALL [None]
  - FEMUR FRACTURE [None]
  - LIMB INJURY [None]
  - LOW TURNOVER OSTEOPATHY [None]
  - LUMBAR SPINAL STENOSIS [None]
  - OSTEOPOROSIS [None]
  - PAIN [None]
  - RADICULITIS LUMBOSACRAL [None]
  - STRESS FRACTURE [None]
